FAERS Safety Report 14720394 (Version 2)
Quarter: 2019Q1

REPORT INFORMATION
  Report Type: Spontaneous
  Country: NL (occurrence: NL)
  Receive Date: 20180405
  Receipt Date: 20190304
  Transmission Date: 20190417
  Serious: Yes (Death, Hospitalization)
  Sender: FDA-Public Use
  Company Number: NL-MYLANLABS-2018M1020873

PATIENT
  Sex: Female

DRUGS (1)
  1. DROSPIRENONE/ETHINYLESTRADIOL [Suspect]
     Active Substance: DROSPIRENONE\ETHINYL ESTRADIOL
     Indication: PRODUCT USED FOR UNKNOWN INDICATION
     Dosage: UNK
     Dates: start: 20170807

REACTIONS (4)
  - Cardiac arrest [Unknown]
  - Rectal haemorrhage [Fatal]
  - Thrombosis [Fatal]
  - Intensive care [Unknown]

NARRATIVE: CASE EVENT DATE: 201708
